FAERS Safety Report 7720984-3 (Version None)
Quarter: 2011Q3

REPORT INFORMATION
  Report Type: 
  Country: None (occurrence: None)
  Receive Date: 20110831
  Receipt Date: 20110824
  Transmission Date: 20111222
  Serious: Yes (Hospitalization)
  Sender: FDA-Public Use
  Company Number: JP-ABBOTT-11P-087-0844375-00

PATIENT
  Sex: Male
  Weight: 46.8 kg

DRUGS (5)
  1. HUMIRA [Suspect]
     Indication: CROHN'S DISEASE
     Route: 058
     Dates: start: 20110706, end: 20110706
  2. BIFIDOBACTERIUM [Concomitant]
     Indication: CROHN'S DISEASE
     Route: 048
  3. MESALAMINE [Concomitant]
     Indication: CROHN'S DISEASE
     Route: 048
     Dates: start: 20110719
  4. TPN [Concomitant]
     Indication: CROHN'S DISEASE
     Dosage: 6 - 7 PACKS/DAY
     Dates: end: 20110801
  5. DIGESTIVE ENZYME PREPARATIONS [Concomitant]
     Indication: CROHN'S DISEASE
     Route: 048

REACTIONS (5)
  - ABDOMINAL PAIN [None]
  - SUBILEUS [None]
  - CHEST DISCOMFORT [None]
  - VOMITING [None]
  - PNEUMONIA ASPIRATION [None]
